APPROVED DRUG PRODUCT: VIOXX
Active Ingredient: ROFECOXIB
Strength: 50MG
Dosage Form/Route: TABLET;ORAL
Application: N021042 | Product #003
Applicant: MERCK RESEARCH LABORATORIES DIV MERCK CO INC
Approved: Feb 25, 2000 | RLD: No | RS: No | Type: DISCN